FAERS Safety Report 8814257 (Version 2)
Quarter: 2013Q2

REPORT INFORMATION
  Report Type: Other
  Country: AU (occurrence: AU)
  Receive Date: 20120928
  Receipt Date: 20130501
  Transmission Date: 20140414
  Serious: Yes (Other)
  Sender: FDA-Public Use
  Company Number: AU-MPIJNJ-2012-06580

PATIENT
  Sex: 0

DRUGS (12)
  1. VELCADE [Suspect]
     Indication: PLASMA CELL MYELOMA
     Dosage: 2.3 MG, UNK
     Route: 065
     Dates: start: 20110615
  2. ASPIRIN [Concomitant]
     Dosage: 100 MG, UNK
     Dates: end: 20110616
  3. CLOPIDOGREL [Concomitant]
     Dosage: 75 MG, UNK
     Dates: end: 20110616
  4. FRUSEMIDE                          /00032601/ [Concomitant]
     Dosage: 80 MG, UNK
  5. LANTUS [Concomitant]
     Dosage: 15 UNITS
  6. AMLODIPINE [Concomitant]
     Dosage: 5 MG, UNK
     Dates: end: 20110617
  7. CLEXANE [Concomitant]
     Dosage: 120 MG, UNK
     Dates: end: 20110628
  8. FLUCONAZOLE [Concomitant]
  9. MEROPENEM [Concomitant]
     Dosage: UNK
     Dates: end: 20110617
  10. OMEPRAZOLE [Concomitant]
     Dosage: 40 MG, UNK
  11. OXYCONTIN [Concomitant]
     Dosage: 20 MG, UNK
     Dates: end: 20110616
  12. SLOW-K [Concomitant]

REACTIONS (2)
  - Convulsion [Recovered/Resolved]
  - Off label use [Unknown]
